FAERS Safety Report 16868815 (Version 2)
Quarter: 2025Q4

REPORT INFORMATION
  Report Type: Spontaneous
  Country: JP (occurrence: JP)
  Receive Date: 20190930
  Receipt Date: 20251106
  Transmission Date: 20260117
  Serious: Yes (Other)
  Sender: PFIZER
  Company Number: JP-PFIZER INC-2018201552

PATIENT
  Age: 74 Year
  Sex: Male

DRUGS (6)
  1. VORICONAZOLE [Suspect]
     Active Substance: VORICONAZOLE
     Indication: Bronchopulmonary aspergillosis
     Dosage: UNK
     Dates: start: 201710
  2. CEFOPERAZONE SODIUM\SULBACTAM [Concomitant]
     Active Substance: CEFOPERAZONE SODIUM\SULBACTAM
     Indication: Cholecystitis acute
     Dosage: UNK
     Dates: start: 201708
  3. CEFOPERAZONE SODIUM\SULBACTAM [Concomitant]
     Active Substance: CEFOPERAZONE SODIUM\SULBACTAM
     Indication: Antibiotic therapy
  4. PREDNISOLONE [Concomitant]
     Active Substance: PREDNISOLONE
     Indication: Haemophagocytic lymphohistiocytosis
     Dosage: 80 MG, DAILY (1 MG/KG/DAY)
     Dates: start: 201708
  5. PREDNISOLONE [Concomitant]
     Active Substance: PREDNISOLONE
     Indication: Cholecystitis acute
     Dosage: 60 MG, DAILY
  6. PREDNISOLONE [Concomitant]
     Active Substance: PREDNISOLONE
     Dosage: 50 MG, DAILY

REACTIONS (1)
  - Pulmonary toxicity [Recovering/Resolving]

NARRATIVE: CASE EVENT DATE: 20171001
